FAERS Safety Report 7384170-1 (Version None)
Quarter: 2011Q1

REPORT INFORMATION
  Report Type: 
  Country: None (occurrence: None)
  Receive Date: 20110330
  Receipt Date: 20110322
  Transmission Date: 20110831
  Serious: Yes (Other)
  Sender: FDA-Public Use
  Company Number: B0708325A

PATIENT
  Age: 54 Year
  Sex: Female

DRUGS (2)
  1. MELPHALAN [Suspect]
     Route: 042
  2. MELPHALAN [Suspect]
     Route: 048

REACTIONS (1)
  - HEPATITIS B [None]
